FAERS Safety Report 18327875 (Version 2)
Quarter: 2021Q2

REPORT INFORMATION
  Report Type: Spontaneous
  Country: US (occurrence: US)
  Receive Date: 20200929
  Receipt Date: 20210629
  Transmission Date: 20210717
  Serious: No
  Sender: FDA-Public Use
  Company Number: US-009507513-2009USA007347

PATIENT
  Age: 78 Year
  Sex: Male

DRUGS (6)
  1. MELATONIN [Concomitant]
     Active Substance: MELATONIN
  2. GABAPENTIN. [Concomitant]
     Active Substance: GABAPENTIN
  3. BELSOMRA [Suspect]
     Active Substance: SUVOREXANT
     Indication: INSOMNIA
     Dosage: 20 MG/ ONCE DAILY AT NIGHT
     Route: 048
     Dates: start: 2020
  4. GLIMEPIRIDE. [Concomitant]
     Active Substance: GLIMEPIRIDE
  5. HYDROXYZINE [Concomitant]
     Active Substance: HYDROXYZINE HYDROCHLORIDE
  6. DOXEPIN HYDROCHLORIDE. [Concomitant]
     Active Substance: DOXEPIN HYDROCHLORIDE

REACTIONS (3)
  - Therapeutic product effect decreased [Unknown]
  - Insomnia [Not Recovered/Not Resolved]
  - Therapeutic product effect decreased [Not Recovered/Not Resolved]

NARRATIVE: CASE EVENT DATE: 202009
